FAERS Safety Report 26121336 (Version 1)
Quarter: 2025Q4

REPORT INFORMATION
  Report Type: Spontaneous
  Country: US (occurrence: None)
  Receive Date: 20251203
  Receipt Date: 20251203
  Transmission Date: 20260118
  Serious: Yes (unspecified)
  Sender: FDA-CTU
  Company Number: None

PATIENT
  Age: 59 Year
  Sex: Female
  Weight: 52.5 kg

DRUGS (1)
  1. FERRLECIT [Suspect]
     Active Substance: SODIUM FERRIC GLUCONATE COMPLEX
     Indication: Iron deficiency
     Route: 041
     Dates: start: 20251129, end: 20251129

REACTIONS (6)
  - Pain [None]
  - Nausea [None]
  - Vomiting [None]
  - Diarrhoea [None]
  - Chest discomfort [None]
  - Feeling of despair [None]

NARRATIVE: CASE EVENT DATE: 20251129
